FAERS Safety Report 21929847 (Version 1)
Quarter: 2023Q1

REPORT INFORMATION
  Report Type: Spontaneous
  Country: US (occurrence: US)
  Receive Date: 20230131
  Receipt Date: 20230131
  Transmission Date: 20230418
  Serious: No
  Sender: FDA-Public Use
  Company Number: US-Blueprint Medicines Corporation-755

PATIENT
  Age: 67 Year
  Sex: Male

DRUGS (1)
  1. AYVAKIT [Suspect]
     Active Substance: AVAPRITINIB
     Indication: Systemic mastocytosis
     Route: 065
     Dates: start: 20211008

REACTIONS (4)
  - Scrotal haematoma [Unknown]
  - Tryptase [Unknown]
  - Platelet count [Unknown]
  - Eructation [Unknown]

NARRATIVE: CASE EVENT DATE: 20220101
